FAERS Safety Report 6296670-6 (Version None)
Quarter: 2009Q3

REPORT INFORMATION
  Report Type: 
  Country: None (occurrence: None)
  Receive Date: 20090804
  Receipt Date: 20090803
  Transmission Date: 20100115
  Serious: Yes (Death, Other)
  Sender: FDA-Public Use
  Company Number: JP-WYE-H09860309

PATIENT
  Sex: Female

DRUGS (5)
  1. ZOSYN [Suspect]
     Indication: PNEUMONIA
     Route: 041
     Dates: start: 20090513, end: 20090601
  2. ITRACONAZOLE [Suspect]
     Indication: PNEUMONIA
     Dates: start: 20090522, end: 20090609
  3. BAKTAR [Concomitant]
     Indication: DRUG USE FOR UNKNOWN INDICATION
     Route: 048
     Dates: start: 20090522, end: 20090609
  4. TIENAM [Concomitant]
     Indication: PNEUMONIA
     Route: 042
     Dates: start: 20090513, end: 20090513
  5. PAZUCROSS [Concomitant]
     Indication: DRUG USE FOR UNKNOWN INDICATION
     Route: 042
     Dates: start: 20090514, end: 20090526

REACTIONS (5)
  - CONCOMITANT DISEASE PROGRESSION [None]
  - GASTRIC ULCER HAEMORRHAGE [None]
  - RENAL FAILURE [None]
  - RESPIRATORY FAILURE [None]
  - RHABDOMYOLYSIS [None]
